FAERS Safety Report 4657212-1 (Version None)
Quarter: 2005Q2

REPORT INFORMATION
  Report Type: 
  Country: None (occurrence: None)
  Receive Date: 20050506
  Receipt Date: 20050425
  Transmission Date: 20051028
  Serious: Yes (Other)
  Sender: FDA-Public Use
  Company Number: 2005055261

PATIENT
  Age: 22 Year
  Sex: Female
  Weight: 144.2439 kg

DRUGS (5)
  1. DEPO-PROVERA [Suspect]
     Indication: CONTRACEPTION
     Dosage: 150 MG (150 MG, 1ST INJECTION/EVERY 3 MONTHS), INTRAMUSCULAR
     Route: 030
     Dates: start: 20010601, end: 20010601
  2. GEMFIBROZIL [Concomitant]
  3. VALPROATE SODIUM [Concomitant]
  4. LANSOPRAZOLE [Concomitant]
  5. AXOTAL (OLD FORM) (BUTALABITAL, CAFFEINE PARACETAMOL) [Concomitant]

REACTIONS (7)
  - ABDOMINAL PAIN [None]
  - ADVERSE EVENT [None]
  - BLOOD CHOLESTEROL INCREASED [None]
  - HYPERTRIGLYCERIDAEMIA [None]
  - METABOLIC SYNDROME [None]
  - METRORRHAGIA [None]
  - WEIGHT FLUCTUATION [None]
